FAERS Safety Report 24283258 (Version 1)
Quarter: 2024Q3

REPORT INFORMATION
  Report Type: Spontaneous
  Country: US (occurrence: US)
  Receive Date: 20240904
  Receipt Date: 20240904
  Transmission Date: 20241016
  Serious: Yes (Other)
  Sender: ELI LILLY AND CO
  Company Number: US-ELI_LILLY_AND_COMPANY-US202408015562

PATIENT

DRUGS (1)
  1. ZEPBOUND [Suspect]
     Active Substance: TIRZEPATIDE
     Indication: Non-alcoholic steatohepatitis
     Dosage: UNK UNK, UNKNOWN
     Route: 065

REACTIONS (3)
  - Cholangiolitis [Unknown]
  - Hepatitis [Unknown]
  - Off label use [Unknown]
